FAERS Safety Report 12620208 (Version 2)
Quarter: 2016Q3

REPORT INFORMATION
  Report Type: Report from Study
  Country: US (occurrence: US)
  Receive Date: 20160803
  Receipt Date: 20160808
  Transmission Date: 20161109
  Serious: Yes (Death)
  Sender: FDA-Public Use
  Company Number: US-ABBVIE-16K-163-1692164-00

PATIENT
  Age: 80 Year
  Sex: Male

DRUGS (2)
  1. ISONIAZIDE [Suspect]
     Active Substance: ISONIAZID
     Indication: PRODUCT USED FOR UNKNOWN INDICATION
     Route: 065
  2. HUMIRA [Suspect]
     Active Substance: ADALIMUMAB
     Indication: PSORIASIS
     Route: 058
     Dates: start: 20160620, end: 20160727

REACTIONS (2)
  - Drug hypersensitivity [Fatal]
  - Latent tuberculosis [Unknown]

NARRATIVE: CASE EVENT DATE: 2016
